FAERS Safety Report 16447156 (Version 7)
Quarter: 2021Q1

REPORT INFORMATION
  Report Type: Report from Study
  Country: DE (occurrence: DE)
  Receive Date: 20190618
  Receipt Date: 20210204
  Transmission Date: 20210419
  Serious: Yes (Death, Hospitalization, Other)
  Sender: FDA-Public Use
  Company Number: DE-INCYTE CORPORATION-2019IN005815

PATIENT

DRUGS (18)
  1. INCB018424 [Suspect]
     Active Substance: RUXOLITINIB
     Indication: PRIMARY MYELOFIBROSIS
     Dosage: 10 MG, PER DAY
     Route: 048
     Dates: start: 20140417, end: 20151122
  2. INCB018424 [Suspect]
     Active Substance: RUXOLITINIB
     Dosage: UNK
     Route: 048
     Dates: start: 201606
  3. INCB018424 [Suspect]
     Active Substance: RUXOLITINIB
     Dosage: 25 MG, BID (IN MORNING AND IN EVENING)
     Route: 048
     Dates: start: 201607
  4. INCB018424 [Suspect]
     Active Substance: RUXOLITINIB
     Dosage: 40 MG, PER DAY
     Route: 048
     Dates: start: 20160714, end: 20161006
  5. PANTOPRAZOLE [Concomitant]
     Active Substance: PANTOPRAZOLE
     Indication: PRODUCT USED FOR UNKNOWN INDICATION
     Dosage: 20 MG, QD (IN TME MORNING)
     Route: 065
  6. PALLADON [Concomitant]
     Active Substance: HYDROMORPHONE
     Indication: PRODUCT USED FOR UNKNOWN INDICATION
     Dosage: 12 MG, BID (IN THE MORNING, IN THE EVENING)
     Route: 065
  7. PALLADON [Concomitant]
     Active Substance: HYDROMORPHONE
     Dosage: 1.3 MG, PRN (MAXIMUM EVERY 4 HOURS)
     Route: 065
  8. NOVALGIN (METAMIZOLE SODIUM) [Concomitant]
     Active Substance: METAMIZOLE SODIUM
     Indication: PRODUCT USED FOR UNKNOWN INDICATION
     Dosage: 500 MG, TID (IN THE MORNING, AT NOON, IN THE EVENING)
     Route: 065
  9. METOCLOPRAMIDE. [Concomitant]
     Active Substance: METOCLOPRAMIDE
     Indication: PRODUCT USED FOR UNKNOWN INDICATION
     Dosage: 10 MG, TID (IN THE MORNING, AT NOON IN THE EVENING)
     Route: 065
  10. VESIKUR [Concomitant]
     Active Substance: SOLIFENACIN SUCCINATE
     Indication: PRODUCT USED FOR UNKNOWN INDICATION
     Dosage: 5 MG, QD (IN THE MORNING)
     Route: 065
  11. INCB018424 [Suspect]
     Active Substance: RUXOLITINIB
     Dosage: 40 MG, PER DAY
     Route: 048
     Dates: start: 20161007, end: 20170327
  12. NOVAMINSULFON [Concomitant]
     Active Substance: METAMIZOLE
     Indication: ARTHRALGIA
     Dosage: 4X40, PER DAY
     Route: 065
     Dates: start: 20151019
  13. MOVICOL [Concomitant]
     Active Substance: POLYETHYLENE GLYCOL 3350\POTASSIUM CHLORIDE\SODIUM BICARBONATE\SODIUM CHLORIDE
     Indication: PRODUCT USED FOR UNKNOWN INDICATION
     Dosage: QD (IN THE MORNING)
     Route: 065
  14. BISOPROLOL [Concomitant]
     Active Substance: BISOPROLOL
     Indication: ATRIAL FIBRILLATION
     Dosage: 2.5 MG, BID
     Route: 065
     Dates: start: 20140122
  15. ALLOPURINOL. [Concomitant]
     Active Substance: ALLOPURINOL
     Indication: PRODUCT USED FOR UNKNOWN INDICATION
     Dosage: 100 MG, QD (IN THE MORNING)
     Route: 065
  16. INCB018424 [Suspect]
     Active Substance: RUXOLITINIB
     Dosage: 30 MG, PER DAY
     Route: 048
     Dates: start: 20151123
  17. PREDNISOLONE. [Concomitant]
     Active Substance: PREDNISOLONE
     Indication: PRODUCT USED FOR UNKNOWN INDICATION
     Dosage: 2.5 MG, QD
     Route: 065
  18. VIGANTOLETTEN [Concomitant]
     Active Substance: CHOLECALCIFEROL
     Indication: PRODUCT USED FOR UNKNOWN INDICATION
     Dosage: 1.000 IU, QD (IN THE MORNING)
     Route: 065

REACTIONS (28)
  - Pyrexia [Unknown]
  - Urinary tract infection [Unknown]
  - Sepsis [Fatal]
  - Colon adenoma [Unknown]
  - Anaemia [Recovered/Resolved]
  - Chills [Unknown]
  - Vein disorder [Unknown]
  - C-reactive protein increased [Unknown]
  - Depression [Unknown]
  - Splenomegaly [Unknown]
  - Dysuria [Unknown]
  - Soft tissue neoplasm [Unknown]
  - Umbilical hernia [Unknown]
  - White blood cell count increased [Unknown]
  - Inflammation [Unknown]
  - Plasma cell myeloma [Unknown]
  - Transformation to acute myeloid leukaemia [Fatal]
  - Second primary malignancy [Unknown]
  - Anaemia [Unknown]
  - Large intestine polyp [Unknown]
  - Haemoglobin decreased [Unknown]
  - Primary myelofibrosis [Unknown]
  - Heart rate increased [Unknown]
  - Urosepsis [Unknown]
  - Haematoma [Unknown]
  - Blast cell count increased [Unknown]
  - Memory impairment [Unknown]
  - Fall [Unknown]

NARRATIVE: CASE EVENT DATE: 201501
